FAERS Safety Report 23028172 (Version 2)
Quarter: 2023Q4

REPORT INFORMATION
  Report Type: Spontaneous
  Country: CO (occurrence: CO)
  Receive Date: 20231004
  Receipt Date: 20231009
  Transmission Date: 20240109
  Serious: Yes (Hospitalization, Other)
  Sender: FDA-Public Use
  Company Number: CO-SANOFI-01706298

PATIENT
  Age: 58 Year
  Sex: Male
  Weight: 65 kg

DRUGS (5)
  1. CEREZYME [Suspect]
     Active Substance: IMIGLUCERASE
     Indication: Gaucher^s disease type I
     Dosage: 60 IU/KG, Q15D
     Route: 042
     Dates: start: 2013, end: 201803
  2. CEREZYME [Suspect]
     Active Substance: IMIGLUCERASE
     Dosage: 6000 IU,(90IU/KG), Q15D
     Route: 042
     Dates: start: 201804, end: 201906
  3. CEREZYME [Suspect]
     Active Substance: IMIGLUCERASE
     Dosage: 8400 IU,(120 IU/KG) Q15D
     Route: 042
     Dates: start: 201906
  4. CALCIUM CARBONATE\VITAMIN D [Concomitant]
     Active Substance: CALCIUM CARBONATE\VITAMIN D
     Dosage: UNK, QD
  5. ZOLEDRONIC ACID [Concomitant]
     Active Substance: ZOLEDRONIC ACID
     Dosage: 4 MG, Q6M
     Route: 042

REACTIONS (9)
  - Bone operation [Unknown]
  - Knee arthroplasty [Unknown]
  - Hip arthroplasty [Unknown]
  - Bone disorder [Unknown]
  - Bone pain [Recovering/Resolving]
  - Chitotriosidase increased [Recovering/Resolving]
  - Limb reconstructive surgery [Unknown]
  - Prescribed overdose [Unknown]
  - Overdose [Unknown]

NARRATIVE: CASE EVENT DATE: 20160521
